FAERS Safety Report 6346148-6 (Version None)
Quarter: 2009Q3

REPORT INFORMATION
  Report Type: 
  Country: None (occurrence: None)
  Receive Date: 20090909
  Receipt Date: 20090902
  Transmission Date: 20100115
  Serious: Yes (Other)
  Sender: FDA-Public Use
  Company Number: CH-WYE-G03922809

PATIENT
  Age: 42 Year
  Sex: Male

DRUGS (1)
  1. BENEFIX [Suspect]
     Indication: FACTOR IX DEFICIENCY
     Dosage: SINCE YEARS, REGULARLY, DOSE UNKNOWN

REACTIONS (3)
  - DRUG EFFECT DECREASED [None]
  - HAEMARTHROSIS [None]
  - UNDERDOSE [None]
